FAERS Safety Report 6654472-2 (Version None)
Quarter: 2010Q1

REPORT INFORMATION
  Report Type: 
  Country: None (occurrence: None)
  Receive Date: 20100326
  Receipt Date: 20100322
  Transmission Date: 20100710
  Serious: Yes (Death, Hospitalization)
  Sender: FDA-Public Use
  Company Number: FR-JNJFOC-20100304012

PATIENT
  Sex: Female

DRUGS (10)
  1. DURAGESIC-100 [Suspect]
     Indication: DRUG USE FOR UNKNOWN INDICATION
     Route: 062
     Dates: start: 20091119, end: 20100120
  2. LYRICA [Concomitant]
     Indication: DRUG USE FOR UNKNOWN INDICATION
     Route: 048
     Dates: start: 20080101, end: 20100118
  3. SERESTA [Concomitant]
     Indication: DRUG USE FOR UNKNOWN INDICATION
     Route: 048
     Dates: start: 20091207, end: 20100120
  4. MOVICOL [Concomitant]
     Indication: DRUG USE FOR UNKNOWN INDICATION
     Route: 065
     Dates: start: 20081002, end: 20100120
  5. STABLON [Concomitant]
     Indication: DRUG USE FOR UNKNOWN INDICATION
     Route: 065
     Dates: start: 20091207, end: 20100120
  6. CEFTRIAXONE [Concomitant]
     Indication: RESPIRATORY TRACT CONGESTION
     Route: 065
     Dates: start: 20100112, end: 20100119
  7. CEFTRIAXONE [Concomitant]
     Indication: PYREXIA
     Route: 065
     Dates: start: 20100112, end: 20100119
  8. DOLIPRANE [Concomitant]
     Indication: DRUG USE FOR UNKNOWN INDICATION
     Route: 065
     Dates: start: 20091028
  9. SCOPODERM [Concomitant]
     Indication: DRUG USE FOR UNKNOWN INDICATION
     Route: 065
     Dates: start: 20100119
  10. TAVANIC [Concomitant]
     Indication: DRUG USE FOR UNKNOWN INDICATION
     Route: 065

REACTIONS (4)
  - ACUTE RESPIRATORY FAILURE [None]
  - BRONCHIAL OBSTRUCTION [None]
  - CENTRAL-ALVEOLAR HYPOVENTILATION [None]
  - LUNG DISORDER [None]
